FAERS Safety Report 23732208 (Version 2)
Quarter: 2024Q2

REPORT INFORMATION
  Report Type: Spontaneous
  Country: US (occurrence: None)
  Receive Date: 20240411
  Receipt Date: 20240528
  Transmission Date: 20240716
  Serious: Yes (Other)
  Sender: FDA-Public Use
  Company Number: 2024A080737

PATIENT
  Sex: Male

DRUGS (1)
  1. IMFINZI [Suspect]
     Active Substance: DURVALUMAB
     Indication: Non-small cell lung cancer stage III

REACTIONS (6)
  - Haemoglobin decreased [Unknown]
  - Goitre [Unknown]
  - Wheezing [Unknown]
  - Cough [Unknown]
  - Product dose omission issue [Unknown]
  - Productive cough [Unknown]
